FAERS Safety Report 6150398-1 (Version None)
Quarter: 2009Q2

REPORT INFORMATION
  Report Type: 
  Country: None (occurrence: None)
  Receive Date: 20090407
  Receipt Date: 20090319
  Transmission Date: 20091009
  Serious: Yes (Death)
  Sender: FDA-Public Use
  Company Number: PVS2-19-MAR-2009

PATIENT
  Age: 30 Year
  Sex: Male
  Weight: 63 kg

DRUGS (5)
  1. SEROMYCIN [Suspect]
     Indication: PULMONARY TUBERCULOSIS
     Dosage: 250 MG, (3/D), ORAL
     Route: 048
     Dates: start: 20070427
  2. PYRAZINAMIDE (PYRAZINADMIDE) [Concomitant]
  3. OFLOXACIN (OFLOXACIN) [Concomitant]
  4. EMB (ETHAMBUTOL DIHYDROCHLORIDE) [Concomitant]
  5. KANAMYCIN [Concomitant]

REACTIONS (1)
  - COMPLETED SUICIDE [None]
